FAERS Safety Report 5922431-0 (Version None)
Quarter: 2008Q3

REPORT INFORMATION
  Report Type: 
  Country: None (occurrence: None)
  Receive Date: 20080909
  Receipt Date: 20080617
  Transmission Date: 20090109
  Serious: Yes (Life-Threatening, Hospitalization)
  Sender: FDA-Public Use
  Company Number: 163-20785-08051398

PATIENT
  Age: 85 Year
  Sex: Female

DRUGS (10)
  1. THALOMID [Suspect]
     Indication: MULTIPLE MYELOMA
     Dosage: 100 MG, DAILY, ORAL : 150 MG, DAILY, ORAL : 200 MG, DAILY, ORAL
     Route: 048
     Dates: start: 20060710, end: 20060901
  2. THALOMID [Suspect]
     Indication: MULTIPLE MYELOMA
     Dosage: 100 MG, DAILY, ORAL : 150 MG, DAILY, ORAL : 200 MG, DAILY, ORAL
     Route: 048
     Dates: start: 20071226, end: 20080101
  3. THALOMID [Suspect]
     Indication: MULTIPLE MYELOMA
     Dosage: 100 MG, DAILY, ORAL : 150 MG, DAILY, ORAL : 200 MG, DAILY, ORAL
     Route: 048
     Dates: start: 20080122, end: 20080501
  4. BENICAR HCT (BENICAR HCT) [Concomitant]
  5. COUMADIN [Concomitant]
  6. OMEPRAZOLE [Concomitant]
  7. NAPROXEN [Concomitant]
  8. L-THYROXINE (LEVOTHYROXINE) [Concomitant]
  9. WARFARIN SODIUM [Concomitant]
  10. DEXAMETHASONE TAB [Concomitant]

REACTIONS (1)
  - RENAL FAILURE ACUTE [None]
